FAERS Safety Report 11942125 (Version 1)
Quarter: 2016Q1

REPORT INFORMATION
  Report Type: Spontaneous
  Country: US (occurrence: US)
  Receive Date: 20160125
  Receipt Date: 20160125
  Transmission Date: 20160526
  Serious: No
  Sender: FDA-Public Use
  Company Number: US-HOSPIRA-2904707

PATIENT
  Age: 56 Year
  Sex: Female
  Weight: 60.32 kg

DRUGS (1)
  1. PRECEDEX [Suspect]
     Active Substance: DEXMEDETOMIDINE HYDROCHLORIDE
     Indication: PRODUCT USED FOR UNKNOWN INDICATION
     Dosage: NOT APPLICABLE
     Dates: start: 201506, end: 201506

REACTIONS (4)
  - Laceration [Recovered/Resolved]
  - Accident at work [Recovered/Resolved]
  - Product container issue [Recovered/Resolved]
  - Product closure removal difficult [Recovered/Resolved]

NARRATIVE: CASE EVENT DATE: 201506
